FAERS Safety Report 8917714 (Version 2)
Quarter: 2012Q4

REPORT INFORMATION
  Report Type: Report from Study
  Country: GB (occurrence: GB)
  Receive Date: 20121119
  Receipt Date: 20121121
  Transmission Date: 20130627
  Serious: Yes (Hospitalization)
  Sender: FDA-Public Use
  Company Number: GB-GILEAD-2012-0064774

PATIENT
  Age: 74 Year
  Sex: Female

DRUGS (10)
  1. AZTREONAM LYSINE [Suspect]
     Indication: BRONCHIECTASIS
     Dosage: 75 mg, TID
     Route: 055
     Dates: start: 20121026, end: 20121109
  2. BLINDED PLACEBO [Suspect]
     Indication: BRONCHIECTASIS
     Dosage: 75 mg, TID
     Route: 055
     Dates: start: 20121026, end: 20121109
  3. BENDROFLUAZIDE [Concomitant]
     Indication: HYPERTENSION
     Dosage: UNK
  4. SALBUTAMOL [Concomitant]
     Indication: BRONCHIECTASIS
     Dosage: UNK
  5. ALENDRONIC ACID [Concomitant]
     Indication: OSTEOPOROSIS PROPHYLAXIS
     Dosage: UNK
  6. SERETIDE [Concomitant]
     Indication: BRONCHIECTASIS
     Dosage: UNK
  7. CARBOCISTEIN [Concomitant]
     Indication: BRONCHIECTASIS
     Dosage: UNK
  8. PREGABALIN [Concomitant]
     Indication: OSTEOARTHRITIS
     Dosage: UNK
  9. VALSARTAN [Concomitant]
     Indication: HYPERTENSION
     Dosage: UNK
  10. DOXYCYCLINE [Concomitant]
     Indication: RESPIRATORY DISORDER
     Dosage: 100 mg, QD
     Route: 048
     Dates: start: 20121108

REACTIONS (1)
  - Dyspnoea [Recovered/Resolved]
